FAERS Safety Report 13925832 (Version 1)
Quarter: 2017Q3

REPORT INFORMATION
  Report Type: Spontaneous
  Country: FR (occurrence: FR)
  Receive Date: 20170831
  Receipt Date: 20170831
  Transmission Date: 20171127
  Serious: Yes (Other)
  Sender: FDA-Public Use
  Company Number: FR-BAYER-2017-162689

PATIENT
  Age: 53 Year
  Sex: Female
  Weight: 82 kg

DRUGS (1)
  1. MIRENA [Suspect]
     Active Substance: LEVONORGESTREL
     Indication: CONTRACEPTION
     Dosage: 20 MCG/24HR, CONT
     Route: 015
     Dates: start: 20080301, end: 20170725

REACTIONS (10)
  - Vertigo [Unknown]
  - Thyroid disorder [Unknown]
  - Depression [Unknown]
  - Weight increased [Unknown]
  - Anxiety [Unknown]
  - Formication [Unknown]
  - Pruritus [Unknown]
  - Tachycardia [Unknown]
  - Anger [Unknown]
  - Loss of libido [Unknown]

NARRATIVE: CASE EVENT DATE: 2008
